FAERS Safety Report 4628315-2 (Version None)
Quarter: 2005Q2

REPORT INFORMATION
  Report Type: 
  Country: None (occurrence: None)
  Receive Date: 20050401
  Receipt Date: 20050318
  Transmission Date: 20051028
  Serious: Yes (Life-Threatening, Hospitalization)
  Sender: FDA-Public Use
  Company Number: 0500006EN0020P

PATIENT
  Age: 9 Year
  Sex: Male

DRUGS (4)
  1. ONCASPAR [Suspect]
     Indication: ACUTE LYMPHOCYTIC LEUKAEMIA
     Dosage: 2375 IU IM
     Route: 030
     Dates: start: 20030721, end: 20030721
  2. VINCRISTINE [Suspect]
     Indication: ACUTE LYMPHOCYTIC LEUKAEMIA
     Dosage: UNKNOWN
     Route: 065
     Dates: start: 20030725, end: 20030725
  3. NYSTATIN [Concomitant]
  4. BACTRIM [Concomitant]

REACTIONS (1)
  - CEREBROVASCULAR ACCIDENT [None]
